FAERS Safety Report 6446028-1 (Version None)
Quarter: 2009Q4

REPORT INFORMATION
  Report Type: 
  Country: None (occurrence: None)
  Receive Date: 20091119
  Receipt Date: 20090827
  Transmission Date: 20100525
  Serious: No
  Sender: FDA-Public Use
  Company Number: A0804758A

PATIENT
  Age: 31 Year
  Sex: Male

DRUGS (3)
  1. WELLBUTRIN SR [Suspect]
     Indication: DEPRESSION
     Dosage: 300MG PER DAY
     Route: 048
     Dates: start: 20090720
  2. PROTONIX [Concomitant]
  3. IBUPROFEN [Concomitant]

REACTIONS (2)
  - URINE ABNORMALITY [None]
  - URINE OUTPUT INCREASED [None]
